FAERS Safety Report 8425768-9 (Version None)
Quarter: 2012Q2

REPORT INFORMATION
  Report Type: 
  Country: None (occurrence: None)
  Receive Date: 20120605
  Receipt Date: 20120529
  Transmission Date: 20120825
  Serious: Yes (Disabling)
  Sender: FDA-Public Use
  Company Number: 2012-002039

PATIENT
  Age: 76 Year
  Sex: Female

DRUGS (11)
  1. ESCITALOPRAM [Concomitant]
  2. VITAMIN D (COLECALCIFEROL) [Concomitant]
  3. ACTONEL [Suspect]
     Dosage: 150 MG ONCE ONLY, ORAL
     Route: 048
  4. ASPIRIN [Concomitant]
  5. LEVEMIR [Concomitant]
  6. SYNTHROID [Concomitant]
  7. CORTISONE ACETATE [Concomitant]
  8. TRAZODONE HCL [Concomitant]
  9. NOVOLIN (INSULIN HUMAN, INSULIN HUMAN INJECTION, ISOPHANE) [Concomitant]
  10. FLORINEF [Concomitant]
  11. VITALUX AREDS (ASCORBIC ACID, BETACAROTENE, COPPER, TOCOPHEROL, XANTOF [Concomitant]

REACTIONS (4)
  - BONE PAIN [None]
  - CONCOMITANT DISEASE PROGRESSION [None]
  - MYALGIA [None]
  - VISUAL IMPAIRMENT [None]
